FAERS Safety Report 21015695 (Version 3)
Quarter: 2022Q3

REPORT INFORMATION
  Report Type: Report from Study
  Country: GB (occurrence: None)
  Receive Date: 20220628
  Receipt Date: 20220722
  Transmission Date: 20221027
  Serious: Yes (Hospitalization)
  Sender: FDA-Public Use
  Company Number: GB-ROCHE-3124234

PATIENT
  Age: 89 Year
  Sex: Female

DRUGS (6)
  1. FARICIMAB [Suspect]
     Active Substance: FARICIMAB
     Indication: Neovascular age-related macular degeneration
     Dosage: ON 09/MAR/2022 DOSE LAST STUDY DRUG ADMIN PRIOR AE/SAE 6 MG
     Route: 050
     Dates: start: 20211208
  2. MINERAL OIL\PETROLATUM\WAX, EMULSIFYING [Concomitant]
     Active Substance: MINERAL OIL\PETROLATUM\WAX, EMULSIFYING
     Route: 061
     Dates: start: 20180101
  3. HYDROCORTISONE [Concomitant]
     Active Substance: HYDROCORTISONE
     Route: 061
     Dates: start: 20180101
  4. CLINITAS [Concomitant]
     Indication: Ocular discomfort
     Route: 047
     Dates: start: 20200212
  5. HYLO NIGHT [Concomitant]
     Route: 047
     Dates: start: 20211013
  6. HYALURONATE SODIUM [Concomitant]
     Active Substance: HYALURONATE SODIUM
     Indication: Dry eye
     Dates: start: 20210915

REACTIONS (2)
  - Fall [Unknown]
  - Orthostatic hypotension [Recovering/Resolving]

NARRATIVE: CASE EVENT DATE: 20220522
